FAERS Safety Report 20619707 (Version 1)
Quarter: 2022Q1

REPORT INFORMATION
  Report Type: Spontaneous
  Country: US (occurrence: US)
  Receive Date: 20220322
  Receipt Date: 20220322
  Transmission Date: 20220423
  Serious: Yes (Other)
  Sender: FDA-Public Use
  Company Number: US-SA-SAC20220316000713

PATIENT

DRUGS (1)
  1. ZANTAC [Suspect]
     Active Substance: RANITIDINE HYDROCHLORIDE
     Dosage: UNK UNK, QD
     Route: 065
     Dates: start: 1988, end: 2018

REACTIONS (4)
  - Renal cancer [Unknown]
  - Chronic kidney disease [Unknown]
  - Anxiety [Unknown]
  - Injury [Unknown]

NARRATIVE: CASE EVENT DATE: 20181001
